FAERS Safety Report 13649634 (Version 1)
Quarter: 2017Q2

REPORT INFORMATION
  Report Type: Spontaneous
  Country: US (occurrence: US)
  Receive Date: 20170614
  Receipt Date: 20170614
  Transmission Date: 20170830
  Serious: No
  Sender: FDA-Public Use
  Company Number: PHEH2017US017894

PATIENT

DRUGS (2)
  1. ILEVRO [Suspect]
     Active Substance: NEPAFENAC
     Indication: POSTOPERATIVE CARE
  2. ILEVRO [Suspect]
     Active Substance: NEPAFENAC
     Indication: PREOPERATIVE CARE
     Dosage: 1 GTT, QD
     Route: 047

REACTIONS (1)
  - Incorrect dose administered [Unknown]
